FAERS Safety Report 5040440-3 (Version None)
Quarter: 2006Q2

REPORT INFORMATION
  Report Type: 
  Country: None (occurrence: None)
  Receive Date: 20060627
  Receipt Date: 20060627
  Transmission Date: 20061013
  Serious: No
  Sender: FDA-Public Use
  Company Number: None

PATIENT
  Sex: Male
  Weight: 68.9467 kg

DRUGS (12)
  1. TENOFOVIR   300MG [Suspect]
     Indication: HIV INFECTION
     Dosage: 300 MG QD PO
     Route: 048
     Dates: start: 20030417, end: 20060222
  2. RITONAVIR [Concomitant]
  3. LAMIVUDINE [Concomitant]
  4. ATAZANAVIR [Concomitant]
  5. ATENOLOL [Concomitant]
  6. METOPROLOL TARTRATE [Concomitant]
  7. HYDROCHLOROTHIAZIDE [Concomitant]
  8. GABAPENTIN [Concomitant]
  9. DIPHENHYDRAMINE HCL [Concomitant]
  10. ASPIRIN [Concomitant]
  11. SILDENAFIL CITRATE [Concomitant]
  12. DOCUSATE [Concomitant]

REACTIONS (30)
  - ASTHENIA [None]
  - BARTTER'S SYNDROME [None]
  - COUGH [None]
  - DRUG INEFFECTIVE [None]
  - DRUG TOXICITY [None]
  - DYSARTHRIA [None]
  - DYSPEPSIA [None]
  - DYSPHAGIA [None]
  - DYSPHASIA [None]
  - FATIGUE [None]
  - GAIT DISTURBANCE [None]
  - GLOMERULAR VASCULAR DISORDER [None]
  - GLYCOSURIA [None]
  - HAEMODIALYSIS [None]
  - KIDNEY FIBROSIS [None]
  - MUSCULOSKELETAL STIFFNESS [None]
  - NAUSEA [None]
  - NECK PAIN [None]
  - NEPHRITIS INTERSTITIAL [None]
  - NEPHROPATHY TOXIC [None]
  - PROTEINURIA [None]
  - RENAL FAILURE ACUTE [None]
  - RENAL INJURY [None]
  - RENAL ISCHAEMIA [None]
  - RENAL TUBULAR ATROPHY [None]
  - RENAL TUBULAR DISORDER [None]
  - RESPIRATION ABNORMAL [None]
  - SENSATION OF FOREIGN BODY [None]
  - SHOULDER PAIN [None]
  - VOMITING [None]
